FAERS Safety Report 7873320-6 (Version None)
Quarter: 2011Q4

REPORT INFORMATION
  Report Type: 
  Country: None (occurrence: None)
  Receive Date: 20111012
  Receipt Date: 20101119
  Transmission Date: 20120403
  Serious: Yes (Other)
  Sender: FDA-Public Use
  Company Number: 2010SP061425

PATIENT
  Age: 19 Year
  Sex: Male

DRUGS (1)
  1. TEMODAR [Suspect]
     Indication: GLIOBLASTOMA MULTIFORME
     Dosage: 150 MG/M2; QD; PO
     Route: 048

REACTIONS (2)
  - ANXIETY [None]
  - NAUSEA [None]
